FAERS Safety Report 5935444-X (Version None)
Quarter: 2008Q4

REPORT INFORMATION
  Report Type: 
  Country: None (occurrence: None)
  Receive Date: 20081028
  Receipt Date: 20081018
  Transmission Date: 20090506
  Serious: Yes (Hospitalization)
  Sender: FDA-Public Use
  Company Number: 2008BI021417

PATIENT
  Age: 32 Year
  Sex: Female

DRUGS (3)
  1. AVONEX [Suspect]
     Indication: MULTIPLE SCLEROSIS
     Dosage: 30 UG; QW; IM
     Route: 030
     Dates: start: 20080403
  2. . [Concomitant]
  3. . [Concomitant]

REACTIONS (4)
  - COLOSTOMY [None]
  - DIVERTICULITIS [None]
  - INFECTION [None]
  - INTESTINAL OBSTRUCTION [None]
